FAERS Safety Report 26122117 (Version 2)
Quarter: 2025Q4

REPORT INFORMATION
  Report Type: Spontaneous
  Country: US (occurrence: US)
  Receive Date: 20251204
  Receipt Date: 20251208
  Transmission Date: 20260117
  Serious: Yes (Other)
  Sender: PURDUE
  Company Number: US-PURDUE-USA-2025-0322643

PATIENT
  Age: 35 Year
  Sex: Female

DRUGS (2)
  1. DEXTROAMPHETAMINE SACCHARATE, AMPHETAMINE ASPARTATE, DEXTROAMPHETAMINE [Suspect]
     Active Substance: AMPHETAMINE ASPARTATE\AMPHETAMINE SULFATE\DEXTROAMPHETAMINE SACCHARATE\DEXTROAMPHETAMINE SULFATE
     Indication: Attention deficit hyperactivity disorder
     Dosage: UNK
     Route: 048
  2. QELBREE [Concomitant]
     Active Substance: VILOXAZINE HYDROCHLORIDE
     Indication: Attention deficit hyperactivity disorder
     Dosage: UNK
     Route: 065

REACTIONS (8)
  - Toxicity to various agents [Unknown]
  - Psychotic disorder [Recovered/Resolved]
  - Hallucination, auditory [Unknown]
  - Hallucination, visual [Unknown]
  - Major depression [Unknown]
  - Physical assault [Unknown]
  - Insomnia [Unknown]
  - Delusion [Unknown]

NARRATIVE: CASE EVENT DATE: 20230101
